FAERS Safety Report 4633415-7 (Version None)
Quarter: 2005Q2

REPORT INFORMATION
  Report Type: 
  Country: None (occurrence: None)
  Receive Date: 20050408
  Receipt Date: 20050328
  Transmission Date: 20051028
  Serious: Yes (Other)
  Sender: FDA-Public Use
  Company Number: EM2005-0112

PATIENT
  Age: 49 Year
  Sex: Male

DRUGS (16)
  1. PROLEUKIN [Suspect]
     Indication: HIV INFECTION
     Dosage: SEE IMAGE
     Route: 058
     Dates: start: 20001127, end: 20001201
  2. PROLEUKIN [Suspect]
     Indication: HIV INFECTION
     Dosage: SEE IMAGE
     Route: 058
     Dates: start: 20010129
  3. PROLEUKIN [Suspect]
     Indication: HIV INFECTION
     Dosage: SEE IMAGE
     Route: 058
     Dates: start: 20010319
  4. PROLEUKIN [Suspect]
     Indication: HIV INFECTION
     Dosage: SEE IMAGE
     Route: 058
     Dates: start: 20020930
  5. PROLEUKIN [Suspect]
     Indication: HIV INFECTION
     Dosage: SEE IMAGE
     Route: 058
     Dates: start: 20030922
  6. PROLEUKIN [Suspect]
     Indication: HIV INFECTION
     Dosage: SEE IMAGE
     Route: 058
     Dates: start: 20030922
  7. PROLEUKIN [Suspect]
  8. PROLEUKIN [Suspect]
  9. PROLEUKIN [Suspect]
  10. PROLEUKIN [Suspect]
  11. PROLEUKIN [Suspect]
  12. THYROXINE SODIUM (LEVOTHYROXINE SODIUM) [Concomitant]
  13. TENOFOVIR (TENOFOVIR) [Concomitant]
  14. LOPINAVIR [Concomitant]
  15. LAMIVUDINE [Concomitant]
  16. RITONAVIR (RITONAVIR) [Concomitant]

REACTIONS (4)
  - ENDOCRINE OPHTHALMOPATHY [None]
  - EYE DISORDER [None]
  - IVTH NERVE PARALYSIS [None]
  - THERAPY NON-RESPONDER [None]
